FAERS Safety Report 6535842-X (Version None)
Quarter: 2010Q1

REPORT INFORMATION
  Report Type: 
  Country: None (occurrence: None)
  Receive Date: 20100106
  Receipt Date: 20091221
  Transmission Date: 20100710
  Serious: Yes (Hospitalization)
  Sender: FDA-Public Use
  Company Number: 1-21125696

PATIENT
  Age: 38 Year
  Sex: Female

DRUGS (1)
  1. SOTRADECOL [Suspect]
     Indication: SCLEROTHERAPY
     Dosage: INTRAVENOUS
     Route: 042

REACTIONS (9)
  - AIR EMBOLISM [None]
  - APHASIA [None]
  - CEREBRAL ARTERY EMBOLISM [None]
  - FALL [None]
  - HEMIPARESIS [None]
  - MUSCULAR WEAKNESS [None]
  - NIH STROKE SCALE SCORE INCREASED [None]
  - PROCEDURAL COMPLICATION [None]
  - SENSORY LOSS [None]
